FAERS Safety Report 7279266-9 (Version None)
Quarter: 2011Q1

REPORT INFORMATION
  Report Type: 
  Country: None (occurrence: None)
  Receive Date: 20110207
  Receipt Date: 20110201
  Transmission Date: 20110831
  Serious: Yes (Hospitalization, Disabling, Other)
  Sender: FDA-Public Use
  Company Number: HU-PFIZER INC-2011024277

PATIENT
  Age: 76 Year
  Sex: Male
  Weight: 90 kg

DRUGS (13)
  1. CAVINTON [Concomitant]
     Dosage: UNK
     Dates: start: 20010101
  2. LYRICA [Suspect]
     Dosage: 150 MG, 2X/DAY
     Route: 048
     Dates: start: 20100720
  3. VITAMIN B [Concomitant]
     Dosage: UNK
     Dates: start: 20010101
  4. ALPRAZOLAM [Concomitant]
     Dosage: UNK
     Dates: start: 20060101
  5. HYPNOGEN [Concomitant]
     Indication: SLEEP DISORDER
     Dosage: UNK
     Dates: start: 20080101
  6. LYRICA [Suspect]
     Dosage: 75 MG, 2X/DAY
     Route: 048
     Dates: start: 20090801, end: 20100720
  7. LYRICA [Suspect]
     Dosage: 75 MG, 2X/DAY
     Route: 048
     Dates: start: 20100101
  8. CHINOTAL [Concomitant]
     Dosage: UNK
     Dates: start: 20060101
  9. NITROMINT [Concomitant]
     Dosage: UNK
     Dates: start: 19910101
  10. BETALOC [Concomitant]
     Dosage: UNK
     Dates: start: 19910101
  11. PAROXETINE [Concomitant]
     Dosage: UNK
     Dates: start: 20060101
  12. ASPIRIN [Concomitant]
     Dosage: UNK
     Dates: start: 19910101
  13. VITAMIN D [Concomitant]
     Dosage: UNK
     Dates: start: 20010101

REACTIONS (3)
  - FALL [None]
  - MEMORY IMPAIRMENT [None]
  - ASTHENIA [None]
